FAERS Safety Report 15654901 (Version 2)
Quarter: 2018Q4

REPORT INFORMATION
  Report Type: Report from Study
  Country: US (occurrence: US)
  Receive Date: 20181126
  Receipt Date: 20181205
  Transmission Date: 20190205
  Serious: No
  Sender: FDA-Public Use
  Company Number: PHEH2018US049056

PATIENT
  Age: 69 Year
  Sex: Female

DRUGS (1)
  1. GILENYA [Suspect]
     Active Substance: FINGOLIMOD HYDROCHLORIDE
     Indication: MULTIPLE SCLEROSIS
     Dosage: 0.5 MG, QD
     Route: 048
     Dates: start: 20181107

REACTIONS (8)
  - Fatigue [Recovered/Resolved]
  - Anxiety [Unknown]
  - Muscular weakness [Unknown]
  - Chills [Unknown]
  - Musculoskeletal discomfort [Unknown]
  - Influenza [Recovered/Resolved]
  - Migraine [Recovered/Resolved]
  - Pain in extremity [Unknown]

NARRATIVE: CASE EVENT DATE: 20181107
